FAERS Safety Report 9184668 (Version 1)
Quarter: 2013Q1

REPORT INFORMATION
  Report Type: Report from Study
  Country: US (occurrence: US)
  Receive Date: 20130324
  Receipt Date: 20130324
  Transmission Date: 20140127
  Serious: Yes (Other)
  Sender: FDA-Public Use
  Company Number: US-ROCHE-787128

PATIENT
  Age: 57 Year
  Sex: Male

DRUGS (13)
  1. PEG-INTERFERON ALFA 2A [Suspect]
     Indication: HEPATITIS C
     Route: 058
     Dates: start: 20100927, end: 20110131
  2. RIBAVIRIN [Suspect]
     Indication: HEPATITIS C
     Route: 048
     Dates: start: 20100927, end: 20110202
  3. GEMFIBROZIL [Concomitant]
     Route: 065
  4. BENICAR [Concomitant]
     Route: 065
  5. ASA [Concomitant]
     Route: 065
  6. AMBIEN [Concomitant]
     Route: 065
  7. COLECALCIFEROL [Concomitant]
     Dosage: REPORTED: VITAMIN D
     Route: 065
  8. TRAMADOL [Concomitant]
     Route: 065
  9. VICODIN [Concomitant]
     Route: 065
  10. BENADRYL [Concomitant]
     Route: 065
  11. FLAXSEED [Concomitant]
  12. ASPIRIN [Concomitant]
  13. DACLATASVIR [Suspect]
     Indication: HEPATITIS C
     Route: 048
     Dates: start: 20100927, end: 20110202

REACTIONS (1)
  - Retinal haemorrhage [Not Recovered/Not Resolved]
